FAERS Safety Report 5428815-1 (Version None)
Quarter: 2007Q3

REPORT INFORMATION
  Report Type: 
  Country: None (occurrence: None)
  Receive Date: 20070829
  Receipt Date: 20070119
  Transmission Date: 20080115
  Serious: No
  Sender: FDA-Public Use
  Company Number: A0631515A

PATIENT
  Age: 40 Year
  Sex: Female

DRUGS (1)
  1. ZOVIRAX [Suspect]
     Dates: start: 20061208, end: 20061201

REACTIONS (9)
  - AURICULAR SWELLING [None]
  - ERYTHEMA [None]
  - HYPERSENSITIVITY [None]
  - LIP SWELLING [None]
  - PARAESTHESIA [None]
  - PRURITUS [None]
  - RASH [None]
  - SWOLLEN TONGUE [None]
  - URTICARIA [None]
